FAERS Safety Report 21005504 (Version 2)
Quarter: 2022Q2

REPORT INFORMATION
  Report Type: Spontaneous
  Country: BR (occurrence: BR)
  Receive Date: 20220624
  Receipt Date: 20220627
  Transmission Date: 20220721
  Serious: Yes (Hospitalization, Other)
  Sender: FDA-Public Use
  Company Number: BR-BAYER-2022A084178

PATIENT
  Age: 28 Year
  Sex: Female

DRUGS (1)
  1. KYLEENA [Suspect]
     Active Substance: LEVONORGESTREL
     Indication: Contraception
     Dosage: 17.5?G/DAY
     Route: 015
     Dates: start: 20210710

REACTIONS (24)
  - Ectopic pregnancy with contraceptive device [None]
  - Ruptured ectopic pregnancy [None]
  - Internal haemorrhage [None]
  - Abortion of ectopic pregnancy [None]
  - Syncope [None]
  - Syncope [None]
  - Drug ineffective [None]
  - Dysuria [None]
  - Intermenstrual bleeding [None]
  - Vaginal haemorrhage [None]
  - Proctalgia [None]
  - Malaise [None]
  - Urinary tract infection [None]
  - Blood pressure decreased [None]
  - Hyperhidrosis [None]
  - Pelvic pain [None]
  - Pyrexia [None]
  - Asthenia [None]
  - Procedural pain [None]
  - Blood pressure decreased [None]
  - Depression [None]
  - Blood pressure decreased [None]
  - Abdominal pain lower [None]
  - Tachycardia [None]

NARRATIVE: CASE EVENT DATE: 20211201
